FAERS Safety Report 6409850-3 (Version None)
Quarter: 2009Q4

REPORT INFORMATION
  Report Type: 
  Country: None (occurrence: None)
  Receive Date: 20091022
  Receipt Date: 20091013
  Transmission Date: 20100525
  Serious: Yes (Other)
  Sender: FDA-Public Use
  Company Number: US-JNJFOC-20091004977

PATIENT
  Sex: Female

DRUGS (7)
  1. ELMIRON [Suspect]
     Indication: CYSTITIS INTERSTITIAL
     Route: 048
  2. DESYREL [Concomitant]
     Route: 048
  3. PROPRANOLOL [Concomitant]
     Indication: BLOOD PRESSURE
     Route: 048
  4. DEPAKOTE [Concomitant]
     Route: 048
  5. VALTREX [Concomitant]
     Route: 048
  6. SYNTHROID [Concomitant]
     Route: 048
  7. UNKNOWN MEDICATION [Concomitant]
     Route: 048

REACTIONS (6)
  - ABDOMINAL PAIN UPPER [None]
  - DIZZINESS [None]
  - DYSPNOEA [None]
  - HEART RATE INCREASED [None]
  - HEART RATE IRREGULAR [None]
  - PHARYNGEAL OEDEMA [None]
